FAERS Safety Report 7301840-1 (Version None)
Quarter: 2011Q1

REPORT INFORMATION
  Report Type: 
  Country: None (occurrence: None)
  Receive Date: 20110218
  Receipt Date: 20110210
  Transmission Date: 20110831
  Serious: Yes (Other)
  Sender: FDA-Public Use
  Company Number: US-ROCHE-735447

PATIENT
  Sex: Male
  Weight: 99.8 kg

DRUGS (3)
  1. ACCUTANE [Suspect]
     Route: 065
     Dates: end: 19910101
  2. ACCUTANE [Suspect]
     Route: 065
     Dates: start: 19900217
  3. ACCUTANE [Suspect]
     Route: 065
     Dates: start: 19900505, end: 19900701

REACTIONS (3)
  - GASTROINTESTINAL INJURY [None]
  - CROHN'S DISEASE [None]
  - ANAL FISSURE [None]
